FAERS Safety Report 10254130 (Version 1)
Quarter: 2014Q2

REPORT INFORMATION
  Report Type: Report from Study
  Country: BR (occurrence: BR)
  Receive Date: 20140623
  Receipt Date: 20140623
  Transmission Date: 20141212
  Serious: Yes (Other)
  Sender: FDA-Public Use
  Company Number: PHHY2014BR077501

PATIENT
  Sex: Female
  Weight: 58 kg

DRUGS (7)
  1. DIOVAN HCT [Suspect]
     Indication: HYPERTENSION
     Dosage: 1 TABLET(160/25 OR 160/12), IN THE MORNING
     Route: 048
  2. ATENOLOL [Suspect]
     Indication: HYPERTENSION
     Dosage: 50 MG, AT NIGHT
     Route: 048
  3. ATENOLOL [Suspect]
     Indication: HEADACHE
  4. VENLAFAXINE [Concomitant]
     Indication: DEPRESSION
     Dosage: 75 MG, UNK
  5. RAZAPINA [Concomitant]
     Indication: SLEEP DISORDER
     Dosage: 0.5TABLET (30 MG), UNK
  6. GLIFAGE [Concomitant]
     Indication: DIABETES MELLITUS
     Dosage: 30 MG, UNK
  7. PANTOPRAZOLE [Concomitant]
     Indication: GASTRITIS
     Dosage: 20 MG, UNK

REACTIONS (6)
  - Road traffic accident [Recovered/Resolved]
  - Malaise [Recovered/Resolved]
  - Memory impairment [Recovered/Resolved]
  - Somnolence [Recovered/Resolved]
  - Blood pressure inadequately controlled [Recovered/Resolved]
  - Blood pressure decreased [Recovered/Resolved]
